FAERS Safety Report 9739102 (Version 1)
Quarter: 2013Q4

REPORT INFORMATION
  Report Type: Spontaneous
  Country: FR (occurrence: FR)
  Receive Date: 20131209
  Receipt Date: 20131209
  Transmission Date: 20140711
  Serious: Yes (Hospitalization)
  Sender: FDA-Public Use
  Company Number: FR-009507513-1312FRA001024

PATIENT
  Age: 27 Year
  Sex: Female

DRUGS (3)
  1. ORGALUTRAN [Suspect]
     Indication: IN VITRO FERTILISATION
     Dosage: 1 DF, QD
     Route: 058
     Dates: start: 20121213, end: 20121215
  2. GONAL-F [Suspect]
     Indication: IN VITRO FERTILISATION
     Dosage: 125 IU, QD
     Route: 058
     Dates: start: 20121207, end: 20121214
  3. OVITRELLE [Suspect]
     Indication: IN VITRO FERTILISATION
     Dosage: 1 DF, ONCE
     Route: 030
     Dates: start: 20121217

REACTIONS (3)
  - Adnexal torsion [Recovered/Resolved]
  - Ascites [Recovered/Resolved]
  - Ovarian hyperstimulation syndrome [Recovered/Resolved]
